FAERS Safety Report 13963848 (Version 1)
Quarter: 2017Q3

REPORT INFORMATION
  Report Type: Report from Study
  Country: US (occurrence: US)
  Receive Date: 20170913
  Receipt Date: 20170913
  Transmission Date: 20171128
  Serious: Yes (Other)
  Sender: FDA-Public Use
  Company Number: US-AMGEN-USASL2017136033

PATIENT
  Sex: Female

DRUGS (2)
  1. MTX [Concomitant]
     Active Substance: METHOTREXATE SODIUM
     Dosage: UNK UNK, QWK
     Route: 048
  2. ENBREL [Suspect]
     Active Substance: ETANERCEPT
     Indication: RHEUMATOID ARTHRITIS
     Dosage: 50 MG, QWK
     Route: 065

REACTIONS (7)
  - Sinusitis [Unknown]
  - Bronchitis [Unknown]
  - Confusional state [Unknown]
  - Ear infection [Unknown]
  - Fatigue [Unknown]
  - Injection site pain [Unknown]
  - Pharyngitis streptococcal [Unknown]
